FAERS Safety Report 7621204-0 (Version None)
Quarter: 2011Q3

REPORT INFORMATION
  Report Type: 
  Country: None (occurrence: None)
  Receive Date: 20110719
  Receipt Date: 20110712
  Transmission Date: 20111222
  Serious: Yes (Hospitalization)
  Sender: FDA-Public Use
  Company Number: DE-ABBOTT-11P-062-0719843-00

PATIENT
  Sex: Male

DRUGS (1)
  1. HUMIRA [Suspect]
     Indication: PSORIATIC ARTHROPATHY
     Route: 058
     Dates: start: 20071015, end: 20110128

REACTIONS (4)
  - KNEE OPERATION [None]
  - JOINT SWELLING [None]
  - JOINT WARMTH [None]
  - GASTROINTESTINAL DISORDER [None]
